FAERS Safety Report 5412523-7 (Version None)
Quarter: 2007Q3

REPORT INFORMATION
  Report Type: 
  Country: None (occurrence: None)
  Receive Date: 20070813
  Receipt Date: 20070807
  Transmission Date: 20080115
  Serious: Yes (Hospitalization)
  Sender: FDA-Public Use
  Company Number: A0669538A

PATIENT
  Age: 17 Year
  Sex: Female

DRUGS (1)
  1. WELLBUTRIN SR [Suspect]
     Indication: DEPRESSION
     Dosage: 2100MG PER DAY
     Route: 048
     Dates: start: 20070501

REACTIONS (3)
  - AGITATION [None]
  - OVERDOSE [None]
  - SUICIDE ATTEMPT [None]
